FAERS Safety Report 16307331 (Version 2)
Quarter: 2019Q2

REPORT INFORMATION
  Report Type: Report from Study
  Country: US (occurrence: US)
  Receive Date: 20190514
  Receipt Date: 20190620
  Transmission Date: 20190711
  Serious: Yes (Death, Other)
  Sender: FDA-Public Use
  Company Number: US-BIOGEN-2019BI00736475

PATIENT
  Age: 76 Year
  Sex: Female

DRUGS (1)
  1. AVONEX [Suspect]
     Active Substance: INTERFERON BETA-1A
     Indication: MULTIPLE SCLEROSIS
     Route: 030

REACTIONS (16)
  - Chronic kidney disease [Not Recovered/Not Resolved]
  - Nausea [Not Recovered/Not Resolved]
  - Acute myocardial infarction [Fatal]
  - Feeling hot [Not Recovered/Not Resolved]
  - Cardiogenic shock [Not Recovered/Not Resolved]
  - Pneumonia [Not Recovered/Not Resolved]
  - Hypoxia [Not Recovered/Not Resolved]
  - Acute kidney injury [Unknown]
  - Dyspnoea [Not Recovered/Not Resolved]
  - Anxiety [Not Recovered/Not Resolved]
  - Lethargy [Not Recovered/Not Resolved]
  - Respiratory failure [Fatal]
  - Hemiparesis [Not Recovered/Not Resolved]
  - Encephalopathy [Fatal]
  - Tachycardia [Not Recovered/Not Resolved]
  - Hypotension [Not Recovered/Not Resolved]

NARRATIVE: CASE EVENT DATE: 201904
